FAERS Safety Report 23540739 (Version 3)
Quarter: 2024Q2

REPORT INFORMATION
  Report Type: Spontaneous
  Country: US (occurrence: US)
  Receive Date: 20240219
  Receipt Date: 20240514
  Transmission Date: 20240716
  Serious: Yes (Other)
  Sender: FDA-Public Use
  Company Number: US-Stemline Therapeutics, Inc.-2023ST005148

PATIENT
  Age: 61 Year
  Sex: Female

DRUGS (2)
  1. ORSERDU [Suspect]
     Active Substance: ELACESTRANT
     Indication: Product used for unknown indication
     Dosage: 345MG ONCE DAILY
     Route: 048
     Dates: start: 20231211
  2. ORSERDU [Suspect]
     Active Substance: ELACESTRANT
     Dosage: 345MG ONCE DAILY
     Route: 048
     Dates: start: 20231211

REACTIONS (15)
  - Foreign body in throat [Unknown]
  - Nodule [Unknown]
  - Breast mass [Unknown]
  - Product use issue [Unknown]
  - Flatulence [Unknown]
  - Eructation [Unknown]
  - Anxiety [Unknown]
  - Tumour pain [Unknown]
  - Chest discomfort [Recovered/Resolved]
  - Oropharyngeal pain [Recovering/Resolving]
  - Product size issue [Unknown]
  - Dyspepsia [Recovered/Resolved]
  - Pain in extremity [Unknown]
  - Arthralgia [Unknown]
  - Malignant neoplasm progression [Unknown]
